FAERS Safety Report 5073548-7 (Version None)
Quarter: 2006Q3

REPORT INFORMATION
  Report Type: 
  Country: None (occurrence: None)
  Receive Date: 20060717
  Receipt Date: 20051230
  Transmission Date: 20061208
  Serious: No
  Sender: FDA-Public Use
  Company Number: 2006000009

PATIENT
  Age: 78 Year
  Weight: 63.5036 kg

DRUGS (6)
  1. TARCEVA (TABLET) (EFLOTINIB) [Suspect]
     Indication: NON-SMALL CELL LUNG CANCER
     Dosage: 150 MG (QD), ORAL
     Route: 048
     Dates: start: 20050501
  2. EFFEXOR [Concomitant]
  3. PLAVIX [Concomitant]
  4. PROPOXYPHENE HCL [Concomitant]
  5. CLONIDINE [Concomitant]
  6. ACETAMINOPHEN [Concomitant]

REACTIONS (3)
  - ALOPECIA [None]
  - FATIGUE [None]
  - GROWTH OF EYELASHES [None]
